FAERS Safety Report 8876958 (Version 2)
Quarter: 2013Q1

REPORT INFORMATION
  Report Type: Spontaneous
  Country: US (occurrence: US)
  Receive Date: 20121030
  Receipt Date: 20130111
  Transmission Date: 20140127
  Serious: Yes (Other)
  Sender: FDA-Public Use
  Company Number: US-US-EMD SERONO, INC.-7157157

PATIENT
  Sex: Female
  Weight: 159 kg

DRUGS (10)
  1. REBIF [Suspect]
     Indication: MULTIPLE SCLEROSIS
     Route: 058
     Dates: start: 20110607, end: 201112
  2. REBIF [Suspect]
     Indication: NEURALGIA
     Route: 058
     Dates: start: 201202, end: 201207
  3. REBIF [Suspect]
     Route: 058
     Dates: start: 20121123, end: 20121225
  4. REBIF [Suspect]
     Route: 058
     Dates: start: 20121226
  5. LYRICA [Concomitant]
     Indication: MULTIPLE SCLEROSIS
  6. LYRICA [Concomitant]
     Indication: PREMEDICATION
  7. FLEXERIL [Concomitant]
     Indication: MULTIPLE SCLEROSIS
  8. FLEXERIL [Concomitant]
     Indication: PREMEDICATION
  9. IRON [Concomitant]
     Indication: ANAEMIA
  10. MOTRIN [Concomitant]
     Indication: PREMEDICATION

REACTIONS (4)
  - Epilepsy [Not Recovered/Not Resolved]
  - Influenza like illness [Recovering/Resolving]
  - Injection site pain [Not Recovered/Not Resolved]
  - Injection site pruritus [Recovering/Resolving]
